FAERS Safety Report 12498299 (Version 1)
Quarter: 2016Q2

REPORT INFORMATION
  Report Type: Spontaneous
  Country: FR (occurrence: FR)
  Receive Date: 20160627
  Receipt Date: 20160627
  Transmission Date: 20160815
  Serious: Yes (Hospitalization, Other)
  Sender: FDA-Public Use
  Company Number: FR-TEVA-671043ACC

PATIENT
  Age: 79 Year
  Sex: Female

DRUGS (5)
  1. BENDAMUSTINE HYDROCHLORIDE. [Suspect]
     Active Substance: BENDAMUSTINE HYDROCHLORIDE
     Dosage: CYCLE 4 (ONCE EVERY 28 DAYS)
     Route: 042
     Dates: start: 20160511, end: 20160512
  2. BENDAMUSTINE HYDROCHLORIDE. [Suspect]
     Active Substance: BENDAMUSTINE HYDROCHLORIDE
     Indication: CHRONIC LYMPHOCYTIC LEUKAEMIA
     Dosage: CYCLE 1 (ONCE EVERY 28 DAYS)
     Route: 042
     Dates: start: 20160201, end: 20160202
  3. MABTHERA [Suspect]
     Active Substance: RITUXIMAB
     Indication: CHRONIC LYMPHOCYTIC LEUKAEMIA
     Dosage: (ONCE EVERY 28 DAYS)
     Route: 041
     Dates: start: 20160201, end: 20160512
  4. BENDAMUSTINE HYDROCHLORIDE. [Suspect]
     Active Substance: BENDAMUSTINE HYDROCHLORIDE
     Dosage: CYCLE 2 (ONCE EVERY 28 DAYS)
     Route: 042
  5. BENDAMUSTINE HYDROCHLORIDE. [Suspect]
     Active Substance: BENDAMUSTINE HYDROCHLORIDE
     Dosage: CYCLE 3 (ONCE EVERY 28 DAYS)
     Route: 042

REACTIONS (4)
  - Hypotension [Recovered/Resolved]
  - Erythema [Recovering/Resolving]
  - Acute kidney injury [Unknown]
  - Pyrexia [Recovered/Resolved]

NARRATIVE: CASE EVENT DATE: 20160511
